FAERS Safety Report 8314326-2 (Version None)
Quarter: 2012Q2

REPORT INFORMATION
  Report Type: 
  Country: None (occurrence: None)
  Receive Date: 20120426
  Receipt Date: 20120417
  Transmission Date: 20120825
  Serious: Yes (Hospitalization, Other)
  Sender: FDA-Public Use
  Company Number: US-ABBOTT-12P-163-0924083-00

PATIENT
  Sex: Female
  Weight: 54.026 kg

DRUGS (5)
  1. HUMIRA [Suspect]
     Indication: CROHN'S DISEASE
     Dosage: LOADING DOSE
     Dates: start: 20120301, end: 20120302
  2. EFFEXOR [Concomitant]
     Indication: ANXIETY
     Dosage: EVERY MORNING
  3. MULTI-VITAMIN [Concomitant]
     Indication: PRODUCT USED FOR UNKNOWN INDICATION
  4. EFFEXOR [Concomitant]
     Indication: DEPRESSION
  5. PROTONIX [Concomitant]
     Indication: GASTROOESOPHAGEAL REFLUX DISEASE

REACTIONS (4)
  - HOSPITALISATION [None]
  - ABDOMINAL PAIN [None]
  - ABDOMINAL ABSCESS [None]
  - PYREXIA [None]
